FAERS Safety Report 8586986-2 (Version None)
Quarter: 2012Q3

REPORT INFORMATION
  Report Type: 
  Country: None (occurrence: None)
  Receive Date: 20120810
  Receipt Date: 20120806
  Transmission Date: 20120928
  Serious: Yes (Death)
  Sender: FDA-Public Use
  Company Number: FR-ASTRAZENECA-2012SE55792

PATIENT
  Age: 66 Year
  Sex: Male

DRUGS (21)
  1. SOLU-MEDROL [Suspect]
     Indication: IMMUNOSUPPRESSION
     Route: 042
  2. HEPARIN CALCIUM [Suspect]
     Indication: PROPHYLAXIS
     Dates: end: 20120321
  3. PLITICAN [Suspect]
     Indication: PROPHYLAXIS
     Route: 042
     Dates: start: 20120314, end: 20120319
  4. SULFAMETHOXAZOLE AND TRIMETHOPRIM [Suspect]
     Indication: PROPHYLAXIS
     Route: 048
     Dates: end: 20120405
  5. IDARUBICIN HCL [Concomitant]
     Indication: CHEMOTHERAPY
     Dates: start: 20111001
  6. SANDIMMUNE [Suspect]
     Indication: PROPHYLAXIS
     Route: 042
     Dates: start: 20120123
  7. VFEND [Suspect]
     Indication: PROPHYLAXIS
  8. URSODIOL [Suspect]
     Indication: CHOLESTASIS
     Route: 048
  9. NICARDIPINE HCL [Suspect]
     Indication: HYPERTENSION
     Route: 048
     Dates: end: 20120415
  10. OMEPRAZOLE [Suspect]
     Indication: PROPHYLAXIS
     Route: 042
  11. ZOLPIDEM TARTRATE [Suspect]
     Indication: INSOMNIA
     Route: 048
     Dates: end: 20120318
  12. FOLIC ACID [Suspect]
     Indication: VITAMIN B12 DEFICIENCY
     Dates: end: 20120405
  13. VIDAZA [Concomitant]
     Dates: start: 20110201
  14. PHENOXYMETHYL PENICILLIN [Suspect]
     Indication: PROPHYLAXIS
     Dosage: 2 M IU DAILY
     Route: 048
     Dates: end: 20120322
  15. TIORFAN [Suspect]
     Indication: PROPHYLAXIS AGAINST DIARRHOEA
     Route: 048
     Dates: end: 20120425
  16. CYTARABINE [Concomitant]
     Indication: CHEMOTHERAPY
     Dates: start: 20111001
  17. LEVOTHYROXINE SODIUM [Suspect]
     Indication: HYPOTHYROIDISM
     Route: 042
  18. VALGANCICLOVIR [Suspect]
     Indication: PROPHYLAXIS
     Dates: start: 20120310, end: 20120316
  19. ALBUMIN (HUMAN) [Suspect]
     Dates: end: 20120306
  20. EFFEXOR [Suspect]
     Dates: start: 20120313, end: 20120322
  21. CLORAZEPATE DIPOTASSIUM [Suspect]
     Indication: ANXIETY
     Dosage: UNKNOWN DOSE DAILY
     Route: 048
     Dates: start: 20120313, end: 20120316

REACTIONS (2)
  - MULTI-ORGAN FAILURE [None]
  - THROMBOTIC MICROANGIOPATHY [None]
